FAERS Safety Report 20062051 (Version 1)
Quarter: 2021Q4

REPORT INFORMATION
  Report Type: Spontaneous
  Country: TW (occurrence: TW)
  Receive Date: 20211112
  Receipt Date: 20211112
  Transmission Date: 20220303
  Serious: Yes (Other)
  Sender: FDA-Public Use
  Company Number: TW-BAYER-2021A248558

PATIENT
  Sex: Female

DRUGS (6)
  1. NEXAVAR [Suspect]
     Active Substance: SORAFENIB
     Indication: Metastases to lung
     Dosage: UNK
     Dates: start: 201711, end: 201911
  2. NEXAVAR [Suspect]
     Active Substance: SORAFENIB
     Indication: Metastases to central nervous system
  3. NEXAVAR [Suspect]
     Active Substance: SORAFENIB
     Indication: Hepatocellular carcinoma
  4. STIVARGA [Suspect]
     Active Substance: REGORAFENIB
     Indication: Metastases to lung
     Dosage: UNK
     Dates: start: 201911
  5. STIVARGA [Suspect]
     Active Substance: REGORAFENIB
     Indication: Metastases to central nervous system
  6. STIVARGA [Suspect]
     Active Substance: REGORAFENIB
     Indication: Hepatocellular carcinoma

REACTIONS (2)
  - Hepatocellular carcinoma [None]
  - Hepatocellular carcinoma [None]

NARRATIVE: CASE EVENT DATE: 20191101
